FAERS Safety Report 5717970-1 (Version None)
Quarter: 2008Q2

REPORT INFORMATION
  Report Type: 
  Country: None (occurrence: None)
  Receive Date: 20080425
  Receipt Date: 20080422
  Transmission Date: 20081010
  Serious: Yes (Hospitalization)
  Sender: FDA-Public Use
  Company Number: A0724104A

PATIENT
  Age: 37 Year
  Sex: Male

DRUGS (1)
  1. ADVAIR HFA [Suspect]
     Indication: DRUG USE FOR UNKNOWN INDICATION
     Route: 055

REACTIONS (5)
  - BLOOD GLUCOSE INCREASED [None]
  - FACIAL PAIN [None]
  - FATIGUE [None]
  - MALAISE [None]
  - MUSCLE RIGIDITY [None]
